FAERS Safety Report 7089473-6 (Version None)
Quarter: 2010Q4

REPORT INFORMATION
  Report Type: 
  Country: None (occurrence: None)
  Receive Date: 20101108
  Receipt Date: 20101101
  Transmission Date: 20110411
  Serious: Yes (Hospitalization)
  Sender: FDA-Public Use
  Company Number: US-GENZYME-CLOF-1001296

PATIENT

DRUGS (1)
  1. CLOLAR [Suspect]
     Indication: ACUTE LEUKAEMIA
     Dosage: UNKNOWN
     Route: 042

REACTIONS (2)
  - MEDICAL DEVICE COMPLICATION [None]
  - PYREXIA [None]
